FAERS Safety Report 15555788 (Version 2)
Quarter: 2018Q4

REPORT INFORMATION
  Report Type: Spontaneous
  Country: CL (occurrence: CL)
  Receive Date: 20181026
  Receipt Date: 20181119
  Transmission Date: 20190205
  Serious: Yes (Death, Other)
  Sender: FDA-Public Use
  Company Number: CL-ABBVIE-18K-034-2530337-00

PATIENT
  Age: 20 Year
  Sex: Female

DRUGS (1)
  1. VENETOCLAX. [Suspect]
     Active Substance: VENETOCLAX
     Indication: ACUTE MYELOID LEUKAEMIA
     Route: 065

REACTIONS (5)
  - Procedural complication [Fatal]
  - Transplant [Unknown]
  - Off label use [Unknown]
  - Drug effect incomplete [Unknown]
  - Infection [Fatal]
